FAERS Safety Report 24406864 (Version 1)
Quarter: 2024Q4

REPORT INFORMATION
  Report Type: Spontaneous
  Country: CA (occurrence: CA)
  Receive Date: 20241007
  Receipt Date: 20241007
  Transmission Date: 20250115
  Serious: Yes (Life-Threatening, Hospitalization, Other)
  Sender: SANDOZ
  Company Number: CA-SZ09-PHHY2016CA005060

PATIENT
  Age: 32 Year
  Sex: Female

DRUGS (6)
  1. BUPIVACAINE [Suspect]
     Active Substance: BUPIVACAINE
     Indication: Product used for unknown indication
     Dosage: 12 MG
     Route: 065
  2. FENTANYL [Suspect]
     Active Substance: FENTANYL
     Indication: Spinal anaesthesia
     Dosage: 20 UG
     Route: 065
  3. MORPHINE [Suspect]
     Active Substance: MORPHINE
     Indication: Spinal anaesthesia
     Route: 065
  4. PHENYLEPHRINE [Suspect]
     Active Substance: PHENYLEPHRINE HYDROCHLORIDE
     Dosage: 25 UG/MIN
     Route: 042
  5. PHENYLEPHRINE [Suspect]
     Active Substance: PHENYLEPHRINE HYDROCHLORIDE
     Indication: Spinal anaesthesia
     Dosage: 50 UG/MIN
     Route: 042
  6. BUPIVACAINE HYDROCHLORIDE [Concomitant]
     Active Substance: BUPIVACAINE HYDROCHLORIDE
     Indication: Spinal anaesthesia
     Dosage: 12 MG
     Route: 065

REACTIONS (9)
  - Bradycardia [Recovered/Resolved]
  - Anterior spinal artery syndrome [Recovered/Resolved with Sequelae]
  - Neuralgia [Not Recovered/Not Resolved]
  - Maternal exposure during pregnancy [Unknown]
  - Urinary retention [Recovered/Resolved]
  - Hypotension [Recovered/Resolved]
  - Paralysis [Recovered/Resolved]
  - Rhythm idioventricular [Recovered/Resolved]
  - Spinal cord injury [Recovered/Resolved with Sequelae]
